FAERS Safety Report 15230060 (Version 1)
Quarter: 2018Q3

REPORT INFORMATION
  Report Type: Spontaneous
  Country: US (occurrence: US)
  Receive Date: 20180802
  Receipt Date: 20180802
  Transmission Date: 20181010
  Serious: Yes (Other)
  Sender: FDA-Public Use
  Company Number: US-ACCORD-063010

PATIENT
  Age: 55 Year
  Sex: Female

DRUGS (31)
  1. EFFEXOR XR [Concomitant]
     Active Substance: VENLAFAXINE HYDROCHLORIDE
     Dosage: STRENGTH: 150 MG?1 CAPSULE PO EVERY DAY
     Route: 048
     Dates: start: 20070101, end: 20150726
  2. LORATADINE. [Concomitant]
     Active Substance: LORATADINE
     Dosage: STRENGTH: 10 MG?1 TAB PO EVERY DAY
     Route: 048
  3. NEXIUM [Concomitant]
     Active Substance: ESOMEPRAZOLE MAGNESIUM
     Dosage: STRENGTH: 40 MG?1 TAB PO EVERY DAY
     Route: 048
  4. SEROQUEL [Concomitant]
     Active Substance: QUETIAPINE FUMARATE
     Dosage: STRENGTH: 100 MG?1 TAB PO AT BEDTIME
     Route: 048
  5. FOSAMAX [Concomitant]
     Active Substance: ALENDRONATE SODIUM
     Dosage: 35 MG WITH FULL GLASS OF WATER
  6. MIRALAX [Concomitant]
     Active Substance: POLYETHYLENE GLYCOL 3350
     Dosage: USE DAILY
  7. COMPAZINE [Concomitant]
     Active Substance: PROCHLORPERAZINE MALEATE
     Indication: NAUSEA
     Dosage: STRENGTH: 10 MG ?1 TABLET BY MOUTH EVERY 6 HOURS AS NEEDED
     Route: 048
  8. CYTOXAN [Suspect]
     Active Substance: CYCLOPHOSPHAMIDE
     Indication: INVASIVE DUCTAL BREAST CARCINOMA
  9. DEXAMETHASONE. [Concomitant]
     Active Substance: DEXAMETHASONE
     Dosage: STRENGTH: 4 MG?TAKE 8 MG PO BID THE DAY BEFORE AND DAY AFTER CHEMOTHERAPY
     Route: 048
  10. DOXORUBICIN [Suspect]
     Active Substance: DOXORUBICIN
     Indication: INVASIVE DUCTAL BREAST CARCINOMA
  11. FLONASE [Concomitant]
     Active Substance: FLUTICASONE PROPIONATE
     Dosage: STRENGTH: 50 MCG/ACT SUSP?2 SPRAYS EACH NOSTRIL EVERY DAY
     Dates: start: 20090101, end: 20150726
  12. CARAFATE [Concomitant]
     Active Substance: SUCRALFATE
     Dosage: STRENGTH: 1 MG/10 ML SUSP
  13. TOPAMAX [Concomitant]
     Active Substance: TOPIRAMATE
     Dosage: STRENGTH: 50 MG?ONE TAB PO BID
     Route: 048
  14. OMEPRAZOLE. [Concomitant]
     Active Substance: OMEPRAZOLE
     Indication: DYSPEPSIA
     Dosage: STRENGTH: 20 MG?TAKE ONE CAP PO DAILY
     Route: 048
  15. ZOVIRAX [Concomitant]
     Active Substance: ACYCLOVIR
     Dosage: STRENGTH: 200 MG?ONE CAPSULE PO FIVE TIMES A DAY
     Route: 048
  16. SYMBICORT [Concomitant]
     Active Substance: BUDESONIDE\FORMOTEROL FUMARATE DIHYDRATE
     Dosage: STRENGTH: 160?4.5 MCG/ACT AERO?2 PUFFS BY MOUTH TID
  17. ZOFRAN ODT [Concomitant]
     Active Substance: ONDANSETRON HYDROCHLORIDE
     Indication: NAUSEA
     Dosage: STRENGTH: 8 MG?DISSOLVE 1 TABLET UNDER TONGUE Q 8 HOURS AS NEEDED PRN
  18. CYCLOBENZAPRINE. [Concomitant]
     Active Substance: CYCLOBENZAPRINE
     Dosage: STRENGTH: 10 MG?1 TABS PO AT BEDTIME
     Route: 048
  19. HYZAAR [Concomitant]
     Active Substance: HYDROCHLOROTHIAZIDE\LOSARTAN POTASSIUM
     Dosage: STRENGTH: 100?25 MG?ONE TAB PO EVERY DAY
     Route: 048
  20. SALBUTAMOL [Concomitant]
     Active Substance: ALBUTEROL
     Dosage: STRENGTH: 108 (90 BASE) MCG/ACT AERS?2 PUFFS EVERY 4 HOURS
     Dates: start: 20130101
  21. PREMARIN [Concomitant]
     Active Substance: ESTROGENS, CONJUGATED
     Dates: start: 2002, end: 20150726
  22. IRON [Concomitant]
     Active Substance: IRON
     Dates: start: 20070101, end: 20150726
  23. DOCETAXEL ACCORD [Suspect]
     Active Substance: DOCETAXEL
     Indication: INVASIVE DUCTAL BREAST CARCINOMA
     Dates: start: 20150414, end: 20150729
  24. CARVEDILOL/CARVEDILOL HYDROCHLODRIDE [Concomitant]
     Dosage: STRENGTH: 25 MG?2 TABS PO EVERY DAY
     Route: 048
  25. ERGOCALCIFEROL. [Concomitant]
     Active Substance: ERGOCALCIFEROL
     Dosage: STRENGTH: 50000 UNIT?TAKE ONE PO ONCE A WEEK FOR 12 WEEKS
     Route: 048
  26. HYDROXYZINE [Concomitant]
     Active Substance: HYDROXYZINE HYDROCHLORIDE
     Dosage: STRENGTH: 10 MG?ONE TAB PO TID
     Route: 048
  27. LOVAZA [Concomitant]
     Active Substance: OMEGA-3-ACID ETHYL ESTERS
     Dosage: STRENGTH: 1 GM?1 CAPSULE PO BID
     Route: 048
     Dates: start: 20130101, end: 20150727
  28. COLACE [Concomitant]
     Active Substance: DOCUSATE SODIUM
     Dosage: STRENGTH: 100 MG?1 CAP PO AS NEEDED
     Route: 048
  29. EMLA [Concomitant]
     Active Substance: LIDOCAINE\PRILOCAINE
     Dosage: STRENGTH: 2.5?2.5%
  30. DILAUDID [Concomitant]
     Active Substance: HYDROMORPHONE HYDROCHLORIDE
     Indication: PAIN
     Dosage: TAKE AS DIRECTED PRN
  31. NYSTATIN/NYSTATIN/LIPOSOME [Concomitant]
     Dosage: STRENGTH: 100000 UNIT/ML?SWISH AND SWALLOW 5 ML OF LIQUID FOUR TIMES DAILY.
     Route: 048

REACTIONS (1)
  - Alopecia [Not Recovered/Not Resolved]

NARRATIVE: CASE EVENT DATE: 20150525
